FAERS Safety Report 8453004-6 (Version None)
Quarter: 2012Q2

REPORT INFORMATION
  Report Type: 
  Country: None (occurrence: None)
  Receive Date: 20120620
  Receipt Date: 20120503
  Transmission Date: 20120825
  Serious: No
  Sender: FDA-Public Use
  Company Number: US-VERTEX PHARMACEUTICALS INC.-AE-2012-006466

PATIENT
  Sex: Female
  Weight: 49.94 kg

DRUGS (3)
  1. PEGASYS [Concomitant]
     Indication: HEPATITIS C
     Dates: start: 20120414
  2. COPEGUS [Concomitant]
     Indication: HEPATITIS C
     Dates: start: 20120414
  3. INCIVEK [Suspect]
     Indication: HEPATITIS C
     Route: 048
     Dates: start: 20120414

REACTIONS (6)
  - SOMNOLENCE [None]
  - ABDOMINAL DISTENSION [None]
  - FATIGUE [None]
  - PAIN [None]
  - HEADACHE [None]
  - NAUSEA [None]
